FAERS Safety Report 8534520 (Version 2)
Quarter: 2013Q2

REPORT INFORMATION
  Report Type: Spontaneous
  Country: FR (occurrence: FR)
  Receive Date: 20120427
  Receipt Date: 20130612
  Transmission Date: 20140414
  Serious: Yes (Hospitalization)
  Sender: FDA-Public Use
  Company Number: FR-BAYER-2012-038447

PATIENT
  Age: 30 Year
  Sex: Female
  Weight: 113 kg

DRUGS (1)
  1. QLAIRA [Suspect]
     Indication: ORAL CONTRACEPTION
     Dosage: UNK
     Route: 048
     Dates: start: 201102, end: 20120210

REACTIONS (5)
  - Carotid artery stenosis [None]
  - Intracranial pressure increased [None]
  - Cerebrovascular accident [Recovered/Resolved with Sequelae]
  - Hemiplegia [Recovering/Resolving]
  - Malaise [None]
